FAERS Safety Report 6656855-3 (Version None)
Quarter: 2010Q1

REPORT INFORMATION
  Report Type: 
  Country: None (occurrence: None)
  Receive Date: 20100329
  Receipt Date: 20100329
  Transmission Date: 20100710
  Serious: Yes (Hospitalization)
  Sender: FDA-Public Use
  Company Number: None

PATIENT
  Age: 70 Year
  Sex: Male
  Weight: 34.0198 kg

DRUGS (1)
  1. HALDOL [Suspect]

REACTIONS (6)
  - CONFUSIONAL STATE [None]
  - DEMENTIA [None]
  - DRY MOUTH [None]
  - HEART RATE ABNORMAL [None]
  - SKIN DISORDER [None]
  - TONGUE DISCOLOURATION [None]
